FAERS Safety Report 15686050 (Version 2)
Quarter: 2018Q4

REPORT INFORMATION
  Report Type: Spontaneous
  Country: US (occurrence: US)
  Receive Date: 20181204
  Receipt Date: 20181228
  Transmission Date: 20190205
  Serious: Yes (Other)
  Sender: FDA-Public Use
  Company Number: US-SA-2018SA327739

PATIENT
  Age: 60 Year
  Sex: Female

DRUGS (1)
  1. TERIFLUNOMIDE. [Suspect]
     Active Substance: TERIFLUNOMIDE
     Indication: MULTIPLE SCLEROSIS
     Dosage: 14 MG, QD
     Route: 048
     Dates: start: 20181126

REACTIONS (8)
  - Fatigue [Unknown]
  - Pain in extremity [Unknown]
  - Product dose omission [Unknown]
  - Cognitive disorder [Unknown]
  - Multiple sclerosis relapse [Unknown]
  - Nipple pain [Unknown]
  - Muscle spasms [Unknown]
  - Night sweats [Unknown]
